FAERS Safety Report 4500669-7 (Version None)
Quarter: 2004Q4

REPORT INFORMATION
  Report Type: 
  Country: None (occurrence: None)
  Receive Date: 20041109
  Receipt Date: 20041027
  Transmission Date: 20050328
  Serious: Yes (Hospitalization)
  Sender: FDA-Public Use
  Company Number: ZICO001029

PATIENT
  Age: 40 Year
  Sex: Male
  Weight: 128.8216 kg

DRUGS (8)
  1. ZICONOTIDE [Suspect]
     Indication: PAIN
     Dosage: 0.063 MCG/HR INTRATHECAL
     Route: 037
     Dates: start: 20030623, end: 20040119
  2. SEROQUEL [Concomitant]
  3. DILAUDID [Concomitant]
  4. LORTAB [Concomitant]
  5. ACTIO (FENTANYL) [Concomitant]
  6. ATIVAN [Concomitant]
  7. CELEXA [Concomitant]
  8. DALMANE [Concomitant]

REACTIONS (19)
  - AGGRESSION [None]
  - AGITATION [None]
  - ANGER [None]
  - BIPOLAR I DISORDER [None]
  - DELUSION [None]
  - DISEASE RECURRENCE [None]
  - DRUG INEFFECTIVE [None]
  - FEAR [None]
  - HALLUCINATION, VISUAL [None]
  - INADEQUATE ANALGESIA [None]
  - INTENTIONAL SELF-INJURY [None]
  - IRRITABILITY [None]
  - MANIA [None]
  - MULTIPLE DRUG OVERDOSE INTENTIONAL [None]
  - PAIN [None]
  - PARANOIA [None]
  - PSYCHOTIC DISORDER [None]
  - SUICIDAL IDEATION [None]
  - SUICIDE ATTEMPT [None]
